FAERS Safety Report 10696242 (Version 2)
Quarter: 2015Q1

REPORT INFORMATION
  Report Type: Spontaneous
  Country: FR (occurrence: FR)
  Receive Date: 20150107
  Receipt Date: 20150115
  Transmission Date: 20150721
  Serious: Yes (Life-Threatening, Other)
  Sender: FDA-Public Use
  Company Number: FR-PFIZER INC-2015003920

PATIENT
  Age: 51 Year
  Sex: Female
  Weight: 83 kg

DRUGS (8)
  1. SOLU-MEDROL [Suspect]
     Active Substance: METHYLPREDNISOLONE SODIUM SUCCINATE
     Dosage: UNK
     Route: 040
     Dates: start: 201406
  2. TYSABRI [Suspect]
     Active Substance: NATALIZUMAB
     Indication: MULTIPLE SCLEROSIS
     Dosage: UNK
     Route: 042
     Dates: start: 200812, end: 201201
  3. GILENYA [Suspect]
     Active Substance: FINGOLIMOD HYDROCHLORIDE
     Indication: MULTIPLE SCLEROSIS
     Dosage: 0.5 MG, UNK
     Route: 048
     Dates: start: 201211, end: 201212
  4. COPAXONE [Suspect]
     Active Substance: GLATIRAMER ACETATE
     Indication: MULTIPLE SCLEROSIS
     Dosage: UNK
     Route: 058
     Dates: start: 201212, end: 201309
  5. LYRICA [Concomitant]
     Active Substance: PREGABALIN
     Indication: NEUROPATHY PERIPHERAL
     Dosage: UNK
     Dates: start: 201312
  6. TECFIDERA [Suspect]
     Active Substance: DIMETHYL FUMARATE
     Indication: MULTIPLE SCLEROSIS
     Dosage: 240 MG, 2X/DAY
     Route: 048
     Dates: start: 201406
  7. SOLU-MEDROL [Suspect]
     Active Substance: METHYLPREDNISOLONE SODIUM SUCCINATE
     Indication: MULTIPLE SCLEROSIS
     Dosage: UNK, MONTHLY
     Route: 040
     Dates: start: 201204
  8. AVONEX [Suspect]
     Active Substance: INTERFERON BETA-1A
     Indication: MULTIPLE SCLEROSIS
     Dosage: UNK
     Route: 030
     Dates: start: 201204, end: 201211

REACTIONS (3)
  - Metastasis [Not Recovered/Not Resolved]
  - Pelvic neoplasm [Not Recovered/Not Resolved]
  - Malignant neoplasm of unknown primary site [Not Recovered/Not Resolved]

NARRATIVE: CASE EVENT DATE: 201409
